FAERS Safety Report 15881306 (Version 1)
Quarter: 2019Q1

REPORT INFORMATION
  Report Type: Spontaneous
  Country: IT (occurrence: IT)
  Receive Date: 20190128
  Receipt Date: 20190128
  Transmission Date: 20190417
  Serious: Yes (Death, Hospitalization, Other)
  Sender: FDA-Public Use
  Company Number: IT-MYLANLABS-2019M1007511

PATIENT
  Age: 81 Year
  Sex: Male

DRUGS (5)
  1. METFORMIN [Suspect]
     Active Substance: METFORMIN HYDROCHLORIDE
     Indication: TYPE 2 DIABETES MELLITUS
     Route: 048
  2. BISOPROLOL [Concomitant]
     Active Substance: BISOPROLOL
     Indication: HYPERTENSION
     Route: 065
  3. NOREPINEPHRINE. [Suspect]
     Active Substance: NOREPINEPHRINE
     Indication: HAEMODYNAMIC INSTABILITY
     Dosage: ADMINISTERED AT INCREASING DOSES UP TO 1 MICROG/KG/MIN (INITIAL DOSAGE NOT STATED)
     Route: 050
  4. LINAGLIPTIN [Concomitant]
     Active Substance: LINAGLIPTIN
     Indication: TYPE 2 DIABETES MELLITUS
     Route: 065
  5. ACARBOSE. [Concomitant]
     Active Substance: ACARBOSE
     Indication: TYPE 2 DIABETES MELLITUS
     Route: 065

REACTIONS (13)
  - Electrolyte imbalance [Fatal]
  - Hyperkalaemia [Fatal]
  - Pulseless electrical activity [Fatal]
  - Unresponsive to stimuli [Fatal]
  - Drug ineffective [Unknown]
  - Anuria [Fatal]
  - Metabolic acidosis [Fatal]
  - Acute kidney injury [Fatal]
  - Cardiac arrest [Fatal]
  - Condition aggravated [Fatal]
  - Haemodynamic instability [Fatal]
  - Dehydration [Fatal]
  - Tachycardia [Fatal]
